FAERS Safety Report 7237583-2 (Version None)
Quarter: 2011Q1

REPORT INFORMATION
  Report Type: 
  Country: None (occurrence: None)
  Receive Date: 20110112
  Receipt Date: 20110105
  Transmission Date: 20110831
  Serious: Yes (Other)
  Sender: FDA-Public Use
  Company Number: CA-1184242

PATIENT
  Age: 61 Year
  Sex: Female

DRUGS (1)
  1. VIGAMOX [Suspect]
     Dosage: OPHTHALMIC
     Route: 047

REACTIONS (2)
  - VIRAL INFECTION [None]
  - VISION BLURRED [None]
